FAERS Safety Report 7966945-0 (Version None)
Quarter: 2011Q4

REPORT INFORMATION
  Report Type: 
  Country: None (occurrence: None)
  Receive Date: 20111209
  Receipt Date: 20111129
  Transmission Date: 20120403
  Serious: Yes (Other)
  Sender: FDA-Public Use
  Company Number: JP-PFIZER INC-2011225980

PATIENT
  Age: 81 Year
  Sex: Male

DRUGS (6)
  1. MICARDIS [Concomitant]
     Dosage: UNK
     Dates: start: 20070601
  2. ISOSORBIDE MONONITRATE [Concomitant]
     Dosage: UNK
     Dates: start: 20070601
  3. FAMOTIDINE [Concomitant]
     Dosage: 20 MG, UNK
     Dates: start: 20070601
  4. LIPITOR [Suspect]
     Dosage: 10 MG DAILY
     Route: 048
     Dates: start: 20110902
  5. CARVEDILOL [Concomitant]
     Dosage: UNK
     Route: 048
     Dates: start: 20070601
  6. PLAVIX [Concomitant]
     Dosage: UNK
     Route: 048
     Dates: start: 20070601

REACTIONS (1)
  - EOSINOPHILIC PNEUMONIA [None]
